FAERS Safety Report 8000403 (Version 3)
Quarter: 2014Q1

REPORT INFORMATION
  Report Type: Spontaneous
  Country: US (occurrence: US)
  Receive Date: 20110621
  Receipt Date: 20140321
  Transmission Date: 20141002
  Serious: Yes (Hospitalization, Other)
  Sender: FDA-Public Use
  Company Number: US-ASTRAZENECA-2004UW07958

PATIENT
  Age: 69 Year
  Sex: Female
  Weight: 127 kg

DRUGS (4)
  1. ATACAND [Suspect]
     Indication: HYPERTENSION
     Route: 048
     Dates: start: 2002, end: 201402
  2. ATACAND [Suspect]
     Indication: HYPERTENSION
     Dosage: CANDESARTAN CILEXETIL 16 MG DAILY
     Route: 048
     Dates: start: 201402, end: 20140308
  3. ZESTRIL [Suspect]
     Indication: HYPERTENSION
     Dosage: DAILY
     Route: 048
     Dates: start: 1993, end: 2001
  4. VESICARE [Concomitant]

REACTIONS (13)
  - Hernia [Recovered/Resolved]
  - Stress fracture [Unknown]
  - Weight increased [Not Recovered/Not Resolved]
  - Myalgia [Unknown]
  - Weight loss poor [Unknown]
  - Muscle spasms [Unknown]
  - Oedema peripheral [Not Recovered/Not Resolved]
  - Bone disorder [Unknown]
  - Body height decreased [Not Recovered/Not Resolved]
  - Burning sensation [Recovered/Resolved]
  - Myalgia [Not Recovered/Not Resolved]
  - Lymphoedema [Not Recovered/Not Resolved]
  - Intentional drug misuse [Not Recovered/Not Resolved]
